FAERS Safety Report 24116285 (Version 2)
Quarter: 2024Q3

REPORT INFORMATION
  Report Type: Spontaneous
  Country: PE (occurrence: PE)
  Receive Date: 20240722
  Receipt Date: 20240904
  Transmission Date: 20241016
  Serious: Yes (Hospitalization)
  Sender: TEVA
  Company Number: PE-TEVA-VS-3220819

PATIENT
  Age: 34 Year
  Sex: Female

DRUGS (4)
  1. DICLOFENAC [Suspect]
     Active Substance: DICLOFENAC
     Indication: Pain
     Route: 030
  2. ENOXAPARIN [Suspect]
     Active Substance: ENOXAPARIN
     Indication: Deep vein thrombosis
     Route: 058
  3. MORPHINE [Concomitant]
     Active Substance: MORPHINE
     Indication: Product used for unknown indication
     Route: 065
  4. FEIBA [Suspect]
     Active Substance: ANTI-INHIBITOR COAGULANT COMPLEX
     Indication: Acquired haemophilia
     Route: 065

REACTIONS (6)
  - Acquired haemophilia [Recovering/Resolving]
  - Chest pain [Unknown]
  - Nausea [Unknown]
  - Dyspnoea [Unknown]
  - Injection site haemorrhage [Recovering/Resolving]
  - Factor VIII deficiency [Recovering/Resolving]
